FAERS Safety Report 4282100-2 (Version None)
Quarter: 2004Q1

REPORT INFORMATION
  Report Type: 
  Country: None (occurrence: None)
  Receive Date: 20040130
  Receipt Date: 20030602
  Transmission Date: 20041129
  Serious: No
  Sender: FDA-Public Use
  Company Number: US-BRISTOL-MYERS SQUIBB COMPANY-12291209

PATIENT
  Sex: Female

DRUGS (4)
  1. TRAZODONE HCL [Suspect]
     Route: 048
  2. TOFRANIL [Suspect]
  3. KLONOPIN [Suspect]
  4. LAMICTAL [Suspect]

REACTIONS (2)
  - DEHYDRATION [None]
  - HEADACHE [None]
